FAERS Safety Report 10152645 (Version 2)
Quarter: 2014Q2

REPORT INFORMATION
  Report Type: Spontaneous
  Country: FR (occurrence: FR)
  Receive Date: 20140505
  Receipt Date: 20140509
  Transmission Date: 20141212
  Serious: Yes (Death)
  Sender: FDA-Public Use
  Company Number: FR-ASTRAZENECA-2014SE29674

PATIENT
  Age: 72 Year
  Sex: Male
  Weight: 70 kg

DRUGS (3)
  1. ROPIVACAINE [Suspect]
     Dosage: BOLUS OF 30 ML OF ROPIVACAINE 2 MG/ML (60 MG) 0.85 MG/KG
     Route: 053
  2. ROPIVACAINE [Suspect]
     Dosage: CONTINUOUS PUMP INFUSION AT FLOW OF 10 ML/HR OF ROPIVACAINE (2 MG/ML) 20 MG/HR - 0.28 MG/KG/HR
     Route: 053
  3. LISINOPRIL [Concomitant]

REACTIONS (2)
  - Ventricular fibrillation [Fatal]
  - Ventricular tachycardia [Fatal]
